FAERS Safety Report 7385042-9 (Version None)
Quarter: 2011Q1

REPORT INFORMATION
  Report Type: 
  Country: None (occurrence: None)
  Receive Date: 20110330
  Receipt Date: 20110328
  Transmission Date: 20110831
  Serious: Yes (Hospitalization)
  Sender: FDA-Public Use
  Company Number: US-PURDUE-GBR-2011-0007982

PATIENT
  Age: 67 Year
  Sex: Female

DRUGS (6)
  1. THEOPHYLLINE [Suspect]
     Indication: PRODUCT USED FOR UNKNOWN INDICATION
     Dosage: 300 MG, BID
     Route: 065
  2. THEOPHYLLINE [Suspect]
     Dosage: 300 MG, Q8H
     Route: 065
  3. DILTIAZEM [Concomitant]
     Dosage: 60 MG, Q6H
  4. RANITIDINE [Concomitant]
     Dosage: 150 MG, Q12H
  5. LIDOCAINE [Concomitant]
     Dosage: 1 G/250 ML
     Route: 042
  6. DIGOXIN [Concomitant]
     Dosage: 0.25 MG, DAILY

REACTIONS (1)
  - HYPONATRAEMIA [None]
